FAERS Safety Report 5470151-1 (Version None)
Quarter: 2007Q3

REPORT INFORMATION
  Report Type: 
  Country: None (occurrence: None)
  Receive Date: 20070924
  Receipt Date: 20070830
  Transmission Date: 20080115
  Serious: Yes (Other)
  Sender: FDA-Public Use
  Company Number: FEI2007-1597

PATIENT
  Age: 39 Year
  Sex: Female

DRUGS (1)
  1. PARAGARD T 380A [Suspect]
     Indication: CONTRACEPTION
     Dosage: INTRA-UTERINE
     Route: 015
     Dates: start: 20050101, end: 20070821

REACTIONS (3)
  - ABORTION INDUCED [None]
  - INTRA-UTERINE CONTRACEPTIVE DEVICE REMOVAL [None]
  - UMBILICAL HERNIA REPAIR [None]
